FAERS Safety Report 14151129 (Version 6)
Quarter: 2018Q4

REPORT INFORMATION
  Report Type: Spontaneous
  Country: JP (occurrence: JP)
  Receive Date: 20171102
  Receipt Date: 20181017
  Transmission Date: 20190204
  Serious: Yes (Other)
  Sender: FDA-Public Use
  Company Number: JP-ROCHE-2017950

PATIENT
  Age: 64 Year
  Sex: Female
  Weight: 54 kg

DRUGS (8)
  1. AVASTIN [Suspect]
     Active Substance: BEVACIZUMAB
     Dosage: TREATMENT LINE: 1
     Route: 041
     Dates: start: 20170524, end: 20170719
  2. MIYA-BM [Concomitant]
     Active Substance: CLOSTRIDIUM BUTYRICUM SPORES STRAIN M-55
     Dosage: DOSAGE IS UNCERTAIN.
     Route: 065
     Dates: start: 20170927, end: 20171024
  3. XELODA [Suspect]
     Active Substance: CAPECITABINE
     Indication: COLON CANCER
     Dosage: 2 WEEKS ADMINISTRATION FOLLOWED BY 2 WEEK REST
     Route: 048
     Dates: start: 20161214, end: 20170801
  4. ELPLAT [Suspect]
     Active Substance: OXALIPLATIN
     Indication: COLON CANCER
     Route: 041
     Dates: start: 20161214, end: 20170719
  5. AVASTIN [Suspect]
     Active Substance: BEVACIZUMAB
     Indication: COLON CANCER
     Dosage: TREATMENT LINE: 1
     Route: 041
     Dates: start: 20170111, end: 20170329
  6. AVASTIN [Suspect]
     Active Substance: BEVACIZUMAB
     Dosage: TREATMENT LINE: 1
     Route: 041
     Dates: start: 20171025, end: 20171025
  7. XELODA [Suspect]
     Active Substance: CAPECITABINE
     Dosage: 2 WEEKS ADMINISTRATION FOLLOWED BY 2 WEEK REST
     Route: 048
     Dates: start: 20170927, end: 20171010
  8. PYDOXAL [Concomitant]
     Active Substance: PYRIDOXAL
     Dosage: DOSAGE IS UNCERTAIN.
     Route: 065
     Dates: start: 20161214, end: 20171024

REACTIONS (5)
  - Pyrexia [Unknown]
  - Thrombotic microangiopathy [Recovered/Resolved]
  - Hepatic function abnormal [Unknown]
  - Renal impairment [Unknown]
  - Back pain [Unknown]

NARRATIVE: CASE EVENT DATE: 20171025
